APPROVED DRUG PRODUCT: AMBRISENTAN
Active Ingredient: AMBRISENTAN
Strength: 5MG
Dosage Form/Route: TABLET;ORAL
Application: A208252 | Product #001 | TE Code: AB
Applicant: WATSON LABORATORIES INC
Approved: Mar 28, 2019 | RLD: No | RS: No | Type: RX